FAERS Safety Report 5025312-2 (Version None)
Quarter: 2006Q2

REPORT INFORMATION
  Report Type: 
  Country: None (occurrence: None)
  Receive Date: 20060607
  Receipt Date: 20060525
  Transmission Date: 20061013
  Serious: Yes (Life-Threatening, Hospitalization, Other)
  Sender: FDA-Public Use
  Company Number: 200612229BCC

PATIENT
  Age: 77 Year
  Sex: Female
  Weight: 72.5755 kg

DRUGS (3)
  1. ALEVE [Suspect]
     Indication: ARTHRITIS
     Dosage: 220 MG, PRN, ORAL
     Route: 048
     Dates: end: 20051201
  2. LOTREL [Concomitant]
  3. SINGULAIR [Concomitant]

REACTIONS (2)
  - CYSTITIS [None]
  - RENAL CELL CARCINOMA STAGE UNSPECIFIED [None]
